FAERS Safety Report 24382807 (Version 2)
Quarter: 2024Q4

REPORT INFORMATION
  Report Type: Spontaneous
  Country: PT (occurrence: PT)
  Receive Date: 20241001
  Receipt Date: 20241108
  Transmission Date: 20250115
  Serious: Yes (Hospitalization)
  Sender: AUROBINDO
  Company Number: PT-AUROBINDO-AUR-APL-2024-037263

PATIENT
  Age: 49 Year
  Sex: Female

DRUGS (2)
  1. FUROSEMIDE [Suspect]
     Active Substance: FUROSEMIDE
     Indication: Oedema peripheral
     Dosage: 1 DOSAGE FORM, DAILY
     Route: 065
  2. FUROSEMIDE [Suspect]
     Active Substance: FUROSEMIDE
     Dosage: 40 MILLIGRAM, ONCE A DAY
     Route: 065

REACTIONS (3)
  - Hypotension [Recovered/Resolved]
  - Off label use [Unknown]
  - Product use in unapproved indication [Unknown]
